FAERS Safety Report 16807842 (Version 1)
Quarter: 2019Q3

REPORT INFORMATION
  Report Type: Spontaneous
  Country: JP (occurrence: JP)
  Receive Date: 20190915
  Receipt Date: 20190915
  Transmission Date: 20191005
  Serious: Yes (Death, Other)
  Sender: FDA-Public Use
  Company Number: GXJP2019JP001622

PATIENT
  Sex: Female

DRUGS (2)
  1. AMLODIPINE [Suspect]
     Active Substance: AMLODIPINE BESYLATE
     Indication: HYPERTENSION
     Dosage: UNK
     Route: 048
  2. AMLODIPINE [Suspect]
     Active Substance: AMLODIPINE BESYLATE
     Dosage: UNK
     Route: 048

REACTIONS (13)
  - Aortic aneurysm [Unknown]
  - Depression [Unknown]
  - Laryngeal obstruction [Recovering/Resolving]
  - Anxiety [Recovering/Resolving]
  - Gait disturbance [Unknown]
  - Decreased appetite [Recovering/Resolving]
  - Hypophagia [Unknown]
  - Blood pressure systolic decreased [Recovering/Resolving]
  - Irritability [Recovering/Resolving]
  - Constipation [Recovering/Resolving]
  - Dysphagia [Unknown]
  - Aortic aneurysm rupture [Fatal]
  - Incontinence [Unknown]
